FAERS Safety Report 9461981 (Version 1)
Quarter: 2013Q3

REPORT INFORMATION
  Report Type: Report from Study
  Country: CA (occurrence: CA)
  Receive Date: 20130816
  Receipt Date: 20130816
  Transmission Date: 20140515
  Serious: Yes (Death)
  Sender: FDA-Public Use
  Company Number: CA-INCYTE CORPORATION-2012IN001605

PATIENT
  Age: 63 Year
  Sex: Male

DRUGS (7)
  1. JAKAVI [Suspect]
     Indication: MYELOFIBROSIS
     Dosage: 10 MG, BID
     Route: 048
     Dates: start: 20120811
  2. JAKAVI [Suspect]
     Dosage: 15 MG, BID
     Route: 048
  3. JAKAVI [Suspect]
     Dosage: 10 MG, BID
     Route: 048
     Dates: start: 20130626
  4. ALLOPURINOL [Concomitant]
  5. ASA [Concomitant]
  6. VITAMIN D [Concomitant]
  7. RANITIDINE [Concomitant]

REACTIONS (13)
  - Death [Fatal]
  - Insomnia [Unknown]
  - Haemorrhage [Recovered/Resolved]
  - Nasopharyngitis [Unknown]
  - Spleen disorder [Unknown]
  - White blood cell count increased [Unknown]
  - Drug ineffective [Unknown]
  - Pruritus [Unknown]
  - Contusion [Recovered/Resolved]
  - Platelet count decreased [Unknown]
  - Neutrophil count decreased [Unknown]
  - Haemoglobin decreased [Unknown]
  - White blood cell count decreased [Unknown]
